FAERS Safety Report 6992942-8 (Version None)
Quarter: 2010Q3

REPORT INFORMATION
  Report Type: 
  Country: None (occurrence: None)
  Receive Date: 20100917
  Receipt Date: 20100907
  Transmission Date: 20110219
  Serious: Yes (Hospitalization)
  Sender: FDA-Public Use
  Company Number: HU-NAPPMUNDI-DEU-2010-0005898

PATIENT
  Sex: Female

DRUGS (10)
  1. OXY CR TAB [Suspect]
     Indication: ARTHRALGIA
     Dosage: 20 MG, DAILY
     Route: 048
     Dates: start: 20091217
  2. OXY CR TAB [Suspect]
     Dosage: 50 MG, DAILY
     Route: 048
     Dates: start: 20091209, end: 20091216
  3. TRITACE [Concomitant]
  4. TENAXUM                            /00939801/ [Concomitant]
  5. FURON                              /00032601/ [Concomitant]
  6. KALDYUM [Concomitant]
  7. ZOCOR [Concomitant]
  8. ULCUS VENTRICULI [Concomitant]
  9. FRONTIN [Concomitant]
  10. APO-FAMOTIDINE [Concomitant]

REACTIONS (1)
  - HYPERTENSION [None]
